FAERS Safety Report 4591326-X (Version None)
Quarter: 2005Q1

REPORT INFORMATION
  Report Type: 
  Country: None (occurrence: None)
  Receive Date: 20050223
  Receipt Date: 20050223
  Transmission Date: 20050727
  Serious: Yes (Disabling, Other)
  Sender: FDA-Public Use
  Company Number: None

PATIENT
  Age: 29 Year
  Sex: Female

DRUGS (3)
  1. XYREM [Suspect]
     Indication: NARCOLEPSY
     Dosage: 4.5 GM BID IN SLEEP
     Dates: start: 20040601, end: 20050211
  2. DEXADRINE [Concomitant]
  3. PROZAC [Concomitant]

REACTIONS (2)
  - DELUSION [None]
  - PARANOIA [None]
